FAERS Safety Report 8775526 (Version 4)
Quarter: 2012Q4

REPORT INFORMATION
  Report Type: Report from Study
  Country: US (occurrence: US)
  Receive Date: 20120909
  Receipt Date: 20121121
  Transmission Date: 20130627
  Serious: Yes (Other)
  Sender: FDA-Public Use
  Company Number: US-ABBOTT-12P-163-0973845-00

PATIENT
  Age: 72 None
  Sex: Male
  Weight: 69.46 kg

DRUGS (3)
  1. HUMIRA 40 MG/0.8 ML PEN [Suspect]
     Indication: PSORIASIS
     Route: 058
     Dates: start: 20090325
  2. UNKNOWN MEDICATION [Concomitant]
     Indication: BLOOD CHOLESTEROL INCREASED
  3. ATENOLOL [Concomitant]
     Indication: HYPERTENSION

REACTIONS (5)
  - Poor peripheral circulation [Recovered/Resolved]
  - Peripheral arterial occlusive disease [Recovered/Resolved]
  - Injection site bruising [Not Recovered/Not Resolved]
  - Injection site vesicles [Not Recovered/Not Resolved]
  - Drug administration error [Unknown]
